FAERS Safety Report 12143993 (Version 1)
Quarter: 2016Q1

REPORT INFORMATION
  Report Type: Spontaneous
  Country: US (occurrence: US)
  Receive Date: 20160304
  Receipt Date: 20160304
  Transmission Date: 20160526
  Serious: Yes (Hospitalization)
  Sender: FDA-Public Use
  Company Number: US-HORIZON-RAV-0042-2016

PATIENT
  Age: 18 Year
  Sex: Female

DRUGS (1)
  1. RAVICTI [Suspect]
     Active Substance: GLYCEROL PHENYLBUTYRATE
     Indication: ORNITHINE TRANSCARBAMOYLASE DEFICIENCY
     Dosage: 4.5 ML THREE TIMES DAILY
     Route: 048
     Dates: start: 20150918

REACTIONS (2)
  - Ammonia abnormal [Unknown]
  - Emotional distress [Unknown]

NARRATIVE: CASE EVENT DATE: 20160229
